FAERS Safety Report 22385079 (Version 1)
Quarter: 2023Q2

REPORT INFORMATION
  Report Type: Spontaneous
  Country: US (occurrence: None)
  Receive Date: 20230530
  Receipt Date: 20230530
  Transmission Date: 20230722
  Serious: Yes (Other)
  Sender: FDA-Public Use
  Company Number: 2023A119288

PATIENT
  Sex: Male

DRUGS (1)
  1. FASENRA [Suspect]
     Active Substance: BENRALIZUMAB
     Route: 058

REACTIONS (15)
  - Poisoning [Unknown]
  - Illness [Unknown]
  - Organ failure [Unknown]
  - Suicidal ideation [Unknown]
  - Disability [Unknown]
  - Quality of life decreased [Unknown]
  - Accidental poisoning [Unknown]
  - Blood disorder [Unknown]
  - Arthritis [Unknown]
  - Urinary incontinence [Unknown]
  - Gait disturbance [Unknown]
  - Back pain [Unknown]
  - Defaecation disorder [Unknown]
  - Mental disorder [Unknown]
  - Headache [Unknown]
